FAERS Safety Report 22291283 (Version 1)
Quarter: 2023Q2

REPORT INFORMATION
  Report Type: Spontaneous
  Country: GB (occurrence: GB)
  Receive Date: 20230506
  Receipt Date: 20230506
  Transmission Date: 20230722
  Serious: Yes (Other)
  Sender: FDA-Public Use
  Company Number: GB-MHRA-MED-202304231242306230-RFVPJ

PATIENT
  Age: 80 Year
  Sex: Female
  Weight: 83 kg

DRUGS (1)
  1. METFORMIN HYDROCHLORIDE [Suspect]
     Active Substance: METFORMIN HYDROCHLORIDE
     Indication: Diabetes mellitus
     Dosage: UNK
     Route: 065
     Dates: start: 20180101

REACTIONS (1)
  - Vitamin B complex deficiency [Recovering/Resolving]

NARRATIVE: CASE EVENT DATE: 20230420
